FAERS Safety Report 23227340 (Version 2)
Quarter: 2023Q4

REPORT INFORMATION
  Report Type: Spontaneous
  Country: US (occurrence: US)
  Receive Date: 20231124
  Receipt Date: 20231213
  Transmission Date: 20240110
  Serious: No
  Sender: FDA-Public Use
  Company Number: US-PFIZER INC-202300384901

PATIENT
  Age: 58 Year
  Sex: Female
  Weight: 56.7 kg

DRUGS (2)
  1. IBRANCE [Suspect]
     Active Substance: PALBOCICLIB
     Indication: Breast cancer metastatic
     Dosage: 21 DAYS, 7 DAYS OFF
     Route: 048
     Dates: start: 201606
  2. LETROZOLE [Suspect]
     Active Substance: LETROZOLE
     Indication: Breast cancer stage IV
     Dosage: 2.5 MG, DAILY
     Dates: start: 201606

REACTIONS (2)
  - Decreased immune responsiveness [Recovering/Resolving]
  - Alopecia [Recovering/Resolving]

NARRATIVE: CASE EVENT DATE: 20160601
